FAERS Safety Report 11082993 (Version 1)
Quarter: 2015Q2

REPORT INFORMATION
  Report Type: Report from Study
  Country: US (occurrence: US)
  Receive Date: 20150501
  Receipt Date: 20150501
  Transmission Date: 20150821
  Serious: No
  Sender: FDA-Public Use
  Company Number: US-ABBVIE-14P-163-1296483-00

PATIENT
  Age: 55 Year
  Sex: Male
  Weight: 90.8 kg

DRUGS (9)
  1. VITAMIN B COMPLEX [Concomitant]
     Active Substance: CYANOCOBALAMIN\DEXPANTHENOL\NIACINAMIDE\PYRIDOXINE HYDROCHLORIDE\RIBOFLAVIN 5^-PHOSPHATE SODIUM\THIAMINE HYDROCHLORIDE\VITAMIN B COMPLEX
     Indication: VITAMIN SUPPLEMENTATION
  2. CRESTOR [Concomitant]
     Active Substance: ROSUVASTATIN CALCIUM
     Indication: BLOOD CHOLESTEROL INCREASED
  3. COREG [Suspect]
     Active Substance: CARVEDILOL
     Indication: HYPERTENSION
     Route: 048
     Dates: start: 201407
  4. MELATONIN [Concomitant]
     Active Substance: MELATONIN
     Indication: INSOMNIA
  5. ANDROGEL [Suspect]
     Active Substance: TESTOSTERONE
     Indication: BLOOD TESTOSTERONE DECREASED
     Dosage: 1 PACKET
     Route: 065
     Dates: start: 201407, end: 20141015
  6. CELL POWER [Concomitant]
     Indication: TOBACCO USER
     Dosage: OTC
  7. OMEGA 3 [Concomitant]
     Active Substance: OMEGA-3 FATTY ACIDS
     Indication: VITAMIN SUPPLEMENTATION
  8. LDLX [Concomitant]
     Indication: BLOOD CHOLESTEROL INCREASED
  9. ASPIRIN. [Concomitant]
     Active Substance: ASPIRIN
     Indication: CARDIAC DISORDER

REACTIONS (1)
  - Blood testosterone decreased [Not Recovered/Not Resolved]

NARRATIVE: CASE EVENT DATE: 20141003
